FAERS Safety Report 8138350-8 (Version None)
Quarter: 2012Q1

REPORT INFORMATION
  Report Type: 
  Country: None (occurrence: None)
  Receive Date: 20120215
  Receipt Date: 20120210
  Transmission Date: 20120608
  Serious: Yes (Hospitalization)
  Sender: FDA-Public Use
  Company Number: US-JNJFOC-20120205876

PATIENT
  Sex: Female
  Weight: 38.1 kg

DRUGS (5)
  1. ANASTROZOLE [Concomitant]
     Indication: NEOPLASM MALIGNANT
     Route: 048
     Dates: start: 20100101
  2. ANASTROZOLE [Concomitant]
     Route: 048
     Dates: start: 20070101, end: 20100101
  3. LASIX [Concomitant]
     Indication: FLUID RETENTION
     Route: 048
  4. PANCREAZE MT 10 [Suspect]
     Indication: ENZYME SUPPLEMENTATION
     Route: 048
  5. PEPCID [Concomitant]
     Indication: GASTROOESOPHAGEAL REFLUX DISEASE
     Route: 048

REACTIONS (8)
  - MEMORY IMPAIRMENT [None]
  - PAIN [None]
  - GASTROINTESTINAL PAIN [None]
  - FATIGUE [None]
  - ASTHENIA [None]
  - MALAISE [None]
  - FEELING ABNORMAL [None]
  - NAUSEA [None]
